FAERS Safety Report 12116753 (Version 1)
Quarter: 2016Q1

REPORT INFORMATION
  Report Type: Spontaneous
  Country: IT (occurrence: IT)
  Receive Date: 20160225
  Receipt Date: 20160225
  Transmission Date: 20160526
  Serious: Yes (Hospitalization, Other)
  Sender: FDA-Public Use
  Company Number: IT-DEP_13668_2016

PATIENT
  Age: 64 Year
  Sex: Male

DRUGS (2)
  1. VOLTFAST (DICLOFENAC POTASSIUM) [Suspect]
     Active Substance: DICLOFENAC POTASSIUM
     Indication: ARTHRALGIA
     Dosage: DF
  2. OKI (KETOPROFEN LYSINE) [Suspect]
     Active Substance: KETOPROFEN LYSINE
     Indication: ARTHRALGIA
     Dosage: DF

REACTIONS (5)
  - Anaemia [Unknown]
  - Drug abuse [Unknown]
  - Hypertension [Unknown]
  - Gastritis erosive [Recovered/Resolved]
  - Melaena [Recovered/Resolved]

NARRATIVE: CASE EVENT DATE: 20150624
